FAERS Safety Report 6552799-6 (Version None)
Quarter: 2010Q1

REPORT INFORMATION
  Report Type: 
  Country: None (occurrence: None)
  Receive Date: 20100121
  Receipt Date: 20100106
  Transmission Date: 20100710
  Serious: Yes (Hospitalization)
  Sender: FDA-Public Use
  Company Number: KV200900392

PATIENT
  Age: 69 Year
  Sex: Male
  Weight: 119.3 kg

DRUGS (7)
  1. ISOSORBIDE MONONITRATE [Suspect]
     Indication: ANGINA PECTORIS
     Dosage: 60 MG, QD, ORAL
     Route: 048
     Dates: start: 19950101
  2. ISOSORBIDE MONONITRATE [Suspect]
     Indication: CARDIAC DISORDER
     Dosage: 60 MG, QD, ORAL
     Route: 048
     Dates: start: 19950101
  3. AMARYL [Concomitant]
  4. HYDROCHLOROTHIAZIDE [Concomitant]
  5. LISINORPIL (LISINOPRIL) [Concomitant]
  6. METFORMIN HCL [Concomitant]
  7. LOVASTATIN [Concomitant]

REACTIONS (7)
  - CARDIAC DISORDER [None]
  - DIZZINESS [None]
  - FALL [None]
  - GAIT DISTURBANCE [None]
  - HIP FRACTURE [None]
  - MUSCULAR WEAKNESS [None]
  - PAIN IN EXTREMITY [None]
